FAERS Safety Report 20224326 (Version 1)
Quarter: 2021Q4

REPORT INFORMATION
  Report Type: Report from Study
  Country: FR (occurrence: FR)
  Receive Date: 20211223
  Receipt Date: 20211223
  Transmission Date: 20220303
  Serious: No
  Sender: FDA-Public Use
  Company Number: FR-Merck Healthcare KGaA-9284878

PATIENT
  Sex: Female

DRUGS (2)
  1. SYNAREL [Suspect]
     Active Substance: NAFARELIN ACETATE
     Dosage: UNK
  2. METFORMIN [Suspect]
     Active Substance: METFORMIN HYDROCHLORIDE
     Dosage: UNK

REACTIONS (6)
  - Crying [Unknown]
  - Abdominal pain upper [Unknown]
  - Emotional disorder [Unknown]
  - Frequent bowel movements [Unknown]
  - Depressed mood [Unknown]
  - Anger [Unknown]
